FAERS Safety Report 10230049 (Version 1)
Quarter: 2014Q2

REPORT INFORMATION
  Report Type: Spontaneous
  Country: US (occurrence: None)
  Receive Date: 20140610
  Receipt Date: 20140610
  Transmission Date: 20141212
  Serious: Yes (Hospitalization)
  Sender: FDA-Public Use
  Company Number: None

PATIENT
  Age: 78 Year
  Sex: Female
  Weight: 65.3 kg

DRUGS (2)
  1. XARELTO 15 MG [Suspect]
     Indication: ANTICOAGULANT THERAPY
     Dosage: 1 TABLET QD ORAL
     Route: 048
     Dates: start: 20140502, end: 20140505
  2. WARFARIN [Concomitant]

REACTIONS (1)
  - International normalised ratio increased [None]
